FAERS Safety Report 18146787 (Version 2)
Quarter: 2020Q3

REPORT INFORMATION
  Report Type: Spontaneous
  Country: CA (occurrence: CA)
  Receive Date: 20200813
  Receipt Date: 20200827
  Transmission Date: 20201103
  Serious: Yes (Hospitalization)
  Sender: FDA-Public Use
  Company Number: CA-TEVA-2020-CA-1812768

PATIENT
  Age: 44 Year
  Sex: Male

DRUGS (11)
  1. KETAMINE [Interacting]
     Active Substance: KETAMINE
     Indication: NEURALGIA
     Dosage: 30 HR OVER FIVE DAYS; 8:00 AM TO 2:00 PM EACH DAY; 0.5 MG/KG?1 FOLLOWED BY 0.5 MG/KG?1 HR?1 TITRA...
     Route: 040
  2. LIDOCAINE. [Concomitant]
     Active Substance: LIDOCAINE
     Indication: NEURALGIA
     Dosage: 5 MG KG?1
     Route: 042
  3. MAGNESIUM SULFATE. [Concomitant]
     Active Substance: MAGNESIUM SULFATE
     Indication: NEURALGIA
     Dosage: 50 MG KG ?1 BOLUS
     Route: 040
  4. AMITRIPTYLINE [Suspect]
     Active Substance: AMITRIPTYLINE
     Indication: NEURALGIA
     Route: 065
  5. DULOXETINE. [Suspect]
     Active Substance: DULOXETINE
     Indication: NEURALGIA
     Route: 065
  6. DEXAMETHASONE. [Concomitant]
     Active Substance: DEXAMETHASONE
     Indication: PROPHYLAXIS
     Route: 042
  7. MAGNESIUM SULFATE. [Concomitant]
     Active Substance: MAGNESIUM SULFATE
     Indication: NEURALGIA
     Dosage: FOLLOWED BY AN INFUSION OF 15 MG KG?1 HR?1
     Route: 041
  8. ONDANSETRON [Concomitant]
     Active Substance: ONDANSETRON
     Indication: PROPHYLAXIS
     Route: 042
  9. ZOPICLONE [Suspect]
     Active Substance: ZOPICLONE
     Indication: NEURALGIA
     Route: 065
  10. TEMAZEPAM. [Suspect]
     Active Substance: TEMAZEPAM
     Indication: NEURALGIA
     Route: 065
  11. MIDAZOLAM. [Suspect]
     Active Substance: MIDAZOLAM
     Indication: PROPHYLAXIS
     Route: 042

REACTIONS (2)
  - Behaviour disorder [Recovered/Resolved]
  - Drug interaction [Recovered/Resolved]
